FAERS Safety Report 6441084-9 (Version None)
Quarter: 2009Q4

REPORT INFORMATION
  Report Type: 
  Country: None (occurrence: None)
  Receive Date: 20091116
  Receipt Date: 20091112
  Transmission Date: 20100525
  Serious: Yes (Hospitalization)
  Sender: FDA-Public Use
  Company Number: AU-ROCHE-668423

PATIENT
  Sex: Male

DRUGS (2)
  1. VALIUM [Suspect]
     Indication: DRUG USE FOR UNKNOWN INDICATION
     Route: 048
  2. PROMETHAZINE HCL [Concomitant]

REACTIONS (5)
  - AGGRESSION [None]
  - AGITATION [None]
  - INTENTIONAL OVERDOSE [None]
  - SINUS TACHYCARDIA [None]
  - TACHYPNOEA [None]
